FAERS Safety Report 23391828 (Version 1)
Quarter: 2024Q1

REPORT INFORMATION
  Report Type: Spontaneous
  Country: US (occurrence: None)
  Receive Date: 20240110
  Receipt Date: 20240110
  Transmission Date: 20240409
  Serious: Yes (Death)
  Sender: FDA-Public Use
  Company Number: None

PATIENT
  Age: 75 Year
  Sex: Male

DRUGS (18)
  1. MYCOPHENOLIC ACID [Suspect]
     Active Substance: MYCOPHENOLIC ACID
     Dosage: FREQUENCY : TWICE A DAY;?
     Route: 048
     Dates: start: 20210620, end: 20240105
  2. TACROLIMUS [Suspect]
     Active Substance: TACROLIMUS
     Dosage: FREQUENCY : TWICE A DAY;?
     Route: 048
     Dates: start: 20210620, end: 20240105
  3. AZITHROMYCIN [Concomitant]
  4. HYDRALAZINE [Concomitant]
  5. MONTELUKAST [Concomitant]
     Active Substance: MONTELUKAST SODIUM
  6. SULFAMETHOXAZOLE\TRIMETHOPRIM [Concomitant]
     Active Substance: SULFAMETHOXAZOLE\TRIMETHOPRIM
  7. VITAMINS [Concomitant]
     Active Substance: VITAMINS
  8. PREDNISONE [Concomitant]
     Active Substance: PREDNISONE
  9. MAGNESIUM OXIDE [Concomitant]
     Active Substance: MAGNESIUM OXIDE
  10. LEFLUNOMIDE [Concomitant]
     Active Substance: LEFLUNOMIDE
  11. VALGANCICLOVIR [Concomitant]
     Active Substance: VALGANCICLOVIR
  12. PANTOPRAZOLE [Concomitant]
     Active Substance: PANTOPRAZOLE
  13. PANTOPRAZOLE [Suspect]
     Active Substance: PANTOPRAZOLE
  14. PRAVASTATIN [Concomitant]
  15. OYSCO [Concomitant]
  16. PREGABALIN [Concomitant]
     Active Substance: PREGABALIN
  17. HYDROCODONE BITARTRATE AND ACETAMINOPHEN [Concomitant]
     Active Substance: ACETAMINOPHEN\HYDROCODONE BITARTRATE
  18. oycodone [Concomitant]

REACTIONS (2)
  - Pneumonia [None]
  - Large intestine perforation [None]

NARRATIVE: CASE EVENT DATE: 20240105
